FAERS Safety Report 14293138 (Version 4)
Quarter: 2018Q1

REPORT INFORMATION
  Report Type: Report from Study
  Country: US (occurrence: US)
  Receive Date: 20171215
  Receipt Date: 20180301
  Transmission Date: 20180509
  Serious: Yes (Hospitalization)
  Sender: FDA-Public Use
  Company Number: US-VIFOR (INTERNATIONAL) INC.-VIT-2017-07398

PATIENT
  Age: 78 Year
  Sex: Male
  Weight: 104.3 kg

DRUGS (1)
  1. VELTASSA [Suspect]
     Active Substance: PATIROMER
     Indication: HYPERKALAEMIA
     Route: 048
     Dates: start: 20170421, end: 2017

REACTIONS (8)
  - Blood potassium increased [Not Recovered/Not Resolved]
  - Limb discomfort [Unknown]
  - Cardiac failure congestive [Recovering/Resolving]
  - Renal failure [Recovering/Resolving]
  - Feeling abnormal [Unknown]
  - Influenza [Unknown]
  - Chronic obstructive pulmonary disease [Recovering/Resolving]
  - Blood potassium abnormal [Recovered/Resolved]

NARRATIVE: CASE EVENT DATE: 2017
